FAERS Safety Report 24034661 (Version 1)
Quarter: 2024Q3

REPORT INFORMATION
  Report Type: Spontaneous
  Country: CA (occurrence: CA)
  Receive Date: 20240701
  Receipt Date: 20240701
  Transmission Date: 20241016
  Serious: Yes (Death, Other)
  Sender: CHEPLAPHARM
  Company Number: CA-CHEPLA-2024008099

PATIENT
  Age: 28 Year
  Sex: Male

DRUGS (2)
  1. HYDROXYUREA [Suspect]
     Active Substance: HYDROXYUREA
     Indication: Acute monocytic leukaemia
  2. CYTARABINE [Suspect]
     Active Substance: CYTARABINE
     Indication: Acute monocytic leukaemia

REACTIONS (4)
  - Cardiac arrest [Fatal]
  - Ventricular tachycardia [Unknown]
  - Disseminated intravascular coagulation [Unknown]
  - Haemophagocytic lymphohistiocytosis [Unknown]
